FAERS Safety Report 9627252 (Version 2)
Quarter: 2014Q4

REPORT INFORMATION
  Report Type: Spontaneous
  Country: US (occurrence: US)
  Receive Date: 20131016
  Receipt Date: 20141017
  Transmission Date: 20150529
  Serious: Yes (Other)
  Sender: FDA-Public Use
  Company Number: US-LUNDBECK-DKLU1084746

PATIENT
  Sex: Male
  Weight: 11 kg

DRUGS (5)
  1. CLONAZEPAM. [Concomitant]
     Active Substance: CLONAZEPAM
     Indication: PRODUCT USED FOR UNKNOWN INDICATION
  2. ZONISAMIDE. [Concomitant]
     Active Substance: ZONISAMIDE
     Indication: PRODUCT USED FOR UNKNOWN INDICATION
  3. SABRIL [Suspect]
     Active Substance: VIGABATRIN
     Indication: INFANTILE SPASMS
     Dates: start: 20111130
  4. SABRIL [Suspect]
     Active Substance: VIGABATRIN
     Dates: start: 20120628
  5. SABRIL [Suspect]
     Active Substance: VIGABATRIN

REACTIONS (1)
  - Seizure [Unknown]
